FAERS Safety Report 20423694 (Version 1)
Quarter: 2022Q1

REPORT INFORMATION
  Report Type: Spontaneous
  Country: CN (occurrence: CN)
  Receive Date: 20220203
  Receipt Date: 20220203
  Transmission Date: 20220423
  Serious: Yes (Other)
  Sender: FDA-Public Use
  Company Number: CN-BAXTER-2022BAX002323

PATIENT
  Age: 11 Year
  Sex: Male
  Weight: 30 kg

DRUGS (26)
  1. CYCLOPHOSPHAMIDE [Suspect]
     Active Substance: CYCLOPHOSPHAMIDE
     Indication: Acute lymphocytic leukaemia
     Dosage: 0.9% SODIUM CHLORIDE INJECTION 500 ML + CYCLOPHOSPHAMIDE FOR INJECTION 800 MG
     Route: 042
     Dates: start: 20211212, end: 20211212
  2. CYCLOPHOSPHAMIDE [Suspect]
     Active Substance: CYCLOPHOSPHAMIDE
     Dosage: 0.9% SODIUM CHLORIDE INJECTION 500 ML + CYCLOPHOSPHAMIDE FOR INJECTION 800 MG
     Route: 042
     Dates: start: 20211229, end: 20211229
  3. CYCLOPHOSPHAMIDE [Suspect]
     Active Substance: CYCLOPHOSPHAMIDE
     Dosage: DOSE REINTRODUCED
     Route: 042
  4. SODIUM CHLORIDE [Suspect]
     Active Substance: SODIUM CHLORIDE
     Indication: Medication dilution
     Dosage: 0.9% SODIUM CHLORIDE INJECTION 500 ML + CYCLOPHOSPHAMIDE FOR INJECTION 800 MG
     Route: 042
     Dates: start: 20211212, end: 20211212
  5. SODIUM CHLORIDE [Suspect]
     Active Substance: SODIUM CHLORIDE
     Dosage: 0.9% SODIUM CHLORIDE INJECTION 500 ML + CYCLOPHOSPHAMIDE FOR INJECTION 800 MG
     Route: 042
     Dates: start: 20211229, end: 20211229
  6. SODIUM CHLORIDE [Suspect]
     Active Substance: SODIUM CHLORIDE
     Dosage: DOSE REINTRODUCED; SODIUM CHLORIDE + CYCLOPHOSPHAMIDE
     Route: 042
  7. SODIUM CHLORIDE [Suspect]
     Active Substance: SODIUM CHLORIDE
     Dosage: SODIUM CHLORIDE INJECTION 90 MG + PEGASPARGASE INJECTION 2400 IU INTRAMUSCULAR INJECTION ONCE
     Route: 030
     Dates: start: 20211214, end: 20211214
  8. SODIUM CHLORIDE [Suspect]
     Active Substance: SODIUM CHLORIDE
     Dosage: SODIUM CHLORIDE INJECTION 90 MG + PEGASPARGASE INJECTION 2400 IU INTRAMUSCULAR INJECTION ONCE
     Route: 030
     Dates: start: 20211229, end: 20211229
  9. SODIUM CHLORIDE [Suspect]
     Active Substance: SODIUM CHLORIDE
     Dosage: DOSE REINTRODUCED; SODIUM CHLORIDE + PEGASPARGASE
     Route: 030
  10. SODIUM CHLORIDE [Suspect]
     Active Substance: SODIUM CHLORIDE
     Dosage: 0.9% SODIUM CHLORIDE INJECTION 250 ML + DAUNORUBICIN HYDROCHLORIDE INJECTION 30 MG
     Route: 041
     Dates: start: 20211214, end: 20211229
  11. SODIUM CHLORIDE [Suspect]
     Active Substance: SODIUM CHLORIDE
     Dosage: DOSE REINTRODUCED; 0.9% SODIUM CHLORIDE INJECTION + DAUNORUBICIN HYDROCHLORIDE INJECTION
     Route: 041
  12. SODIUM CHLORIDE [Suspect]
     Active Substance: SODIUM CHLORIDE
     Dosage: 0.9% SODIUM CHLORIDE INJECTION 500 ML + CYTARABINE HYDROCHLORIDE FOR INJECTION 100 MG
     Route: 041
     Dates: start: 20211212, end: 20211213
  13. SODIUM CHLORIDE [Suspect]
     Active Substance: SODIUM CHLORIDE
     Dosage: DOSE REINTRODUCED; 0.9% SODIUM CHLORIDE INJECTION + CYTARABINE HYDROCHLORIDE
     Route: 041
  14. SODIUM CHLORIDE [Suspect]
     Active Substance: SODIUM CHLORIDE
     Dosage: VINCRISTINE SULFATE FOR INJECTION 1.5 MG + 0.9% SODIUM CHLORIDE INJECTION 50 ML
     Route: 041
     Dates: start: 20211214, end: 20211229
  15. SODIUM CHLORIDE [Suspect]
     Active Substance: SODIUM CHLORIDE
     Dosage: DOSE REINTRODUCED; VINCRISTINE SULFATE FOR INJECTION + 0.9% SODIUM CHLORIDE INJECTION
     Route: 041
  16. PEGASPARGASE [Suspect]
     Active Substance: PEGASPARGASE
     Indication: Acute lymphocytic leukaemia
     Dosage: SODIUM CHLORIDE INJECTION 90 MG,+ PEGASPARGASE INJECTION 2400IU
     Route: 030
     Dates: start: 20211214, end: 20211214
  17. PEGASPARGASE [Suspect]
     Active Substance: PEGASPARGASE
     Dosage: SODIUM CHLORIDE INJECTION 90MG + PEGASPARGASE INJECTION 2400 IU
     Route: 030
     Dates: start: 20211229, end: 20211229
  18. PEGASPARGASE [Suspect]
     Active Substance: PEGASPARGASE
     Dosage: DOSE REINTRODUCED
     Route: 030
  19. DAUNORUBICIN HYDROCHLORIDE [Suspect]
     Active Substance: DAUNORUBICIN HYDROCHLORIDE
     Indication: Acute lymphocytic leukaemia
     Dosage: 0.9% SODIUM CHLORIDE INJECTION 250 ML + DAUNORUBICIN HYDROCHLORIDE INJECTION 30 MG
     Route: 041
     Dates: start: 20211214, end: 20211229
  20. DAUNORUBICIN HYDROCHLORIDE [Suspect]
     Active Substance: DAUNORUBICIN HYDROCHLORIDE
     Dosage: DOSE REINTRODUCED
     Route: 041
  21. CYTARABINE HYDROCHLORIDE [Suspect]
     Active Substance: CYTARABINE HYDROCHLORIDE
     Indication: Acute lymphocytic leukaemia
     Route: 037
     Dates: start: 20211209, end: 20211209
  22. CYTARABINE HYDROCHLORIDE [Suspect]
     Active Substance: CYTARABINE HYDROCHLORIDE
     Dosage: DOSE REINTRODUCED
     Route: 037
  23. CYTARABINE HYDROCHLORIDE [Suspect]
     Active Substance: CYTARABINE HYDROCHLORIDE
     Dosage: 0.9% SODIUM CHLORIDE INJECTION 500 ML + CYTARABINE HYDROCHLORIDE FOR INJECTION 100 MG
     Route: 041
     Dates: start: 20211212, end: 20211213
  24. CYTARABINE HYDROCHLORIDE [Suspect]
     Active Substance: CYTARABINE HYDROCHLORIDE
     Dosage: DOSE REINTRODUCED
     Route: 041
  25. VINCRISTINE SULFATE [Suspect]
     Active Substance: VINCRISTINE SULFATE
     Indication: Acute lymphocytic leukaemia
     Dosage: VINCRISTINE SULFATE FOR INJECTION 1.5 MG + 0.9% SODIUM CHLORIDE INJECTION 50 ML
     Route: 041
     Dates: start: 20211214, end: 20211229
  26. VINCRISTINE SULFATE [Suspect]
     Active Substance: VINCRISTINE SULFATE
     Dosage: DOSE REINTRODUCED
     Route: 041

REACTIONS (1)
  - Myelosuppression [Recovering/Resolving]

NARRATIVE: CASE EVENT DATE: 20220101
